FAERS Safety Report 15228757 (Version 1)
Quarter: 2018Q3

REPORT INFORMATION
  Report Type: Spontaneous
  Country: GB (occurrence: GB)
  Receive Date: 20180801
  Receipt Date: 20180801
  Transmission Date: 20181010
  Serious: Yes (Death, Other)
  Sender: FDA-Public Use
  Company Number: PHHY2018GB058134

PATIENT
  Age: 6 Year
  Sex: Female
  Weight: 38.9 kg

DRUGS (1)
  1. ITRACONAZOLE. [Suspect]
     Active Substance: ITRACONAZOLE
     Indication: BRONCHOPULMONARY ASPERGILLOSIS
     Dosage: 0.5 DF, QD
     Route: 048

REACTIONS (2)
  - Atrial fibrillation [Unknown]
  - Death [Fatal]
